FAERS Safety Report 8826053 (Version 2)
Quarter: 2014Q3

REPORT INFORMATION
  Report Type: Report from Study
  Country: US (occurrence: US)
  Receive Date: 20121005
  Receipt Date: 20140915
  Transmission Date: 20150326
  Serious: Yes (Death, Hospitalization)
  Sender: FDA-Public Use
  Company Number: US-ROCHE-1134335

PATIENT
  Sex: Female

DRUGS (5)
  1. RITUXAN [Suspect]
     Active Substance: RITUXIMAB
     Indication: NON-HODGKIN^S LYMPHOMA
     Route: 042
     Dates: start: 19980227
  2. DECADRON [Concomitant]
     Active Substance: DEXAMETHASONE
     Route: 048
  3. DIFLUCAN [Concomitant]
     Active Substance: FLUCONAZOLE
     Route: 048
  4. ZANTAC [Concomitant]
     Active Substance: RANITIDINE HYDROCHLORIDE
     Route: 065
  5. RITUXAN [Suspect]
     Active Substance: RITUXIMAB
     Indication: LYMPHOMA

REACTIONS (20)
  - Paraesthesia [Unknown]
  - Death [Fatal]
  - Paralysis [Unknown]
  - Vision blurred [Unknown]
  - Abdominal distension [Unknown]
  - Chest discomfort [Unknown]
  - Anorectal disorder [Unknown]
  - Chest pain [Unknown]
  - Hypoaesthesia [Unknown]
  - Dyspnoea [Unknown]
  - Paraesthesia oral [Unknown]
  - Sepsis [Unknown]
  - Pyrexia [Unknown]
  - Fatigue [Unknown]
  - Pain [Unknown]
  - Yellow skin [Unknown]
  - Lethargy [Unknown]
  - Back pain [Unknown]
  - Constipation [Unknown]
  - Neutropenia [Unknown]
